FAERS Safety Report 6327735-8 (Version None)
Quarter: 2009Q3

REPORT INFORMATION
  Report Type: 
  Country: None (occurrence: None)
  Receive Date: 20090824
  Receipt Date: 20090812
  Transmission Date: 20100115
  Serious: Yes (Death, Other)
  Sender: FDA-Public Use
  Company Number: PERC20090106

PATIENT
  Sex: Female

DRUGS (2)
  1. PERCOCET [Suspect]
     Indication: ACCIDENT AT WORK
  2. CLASS II OPIOID [Suspect]

REACTIONS (2)
  - DRUG DEPENDENCE [None]
  - RESPIRATORY ARREST [None]
